FAERS Safety Report 24206649 (Version 1)
Quarter: 2024Q3

REPORT INFORMATION
  Report Type: Spontaneous
  Country: GR (occurrence: GR)
  Receive Date: 20240813
  Receipt Date: 20240813
  Transmission Date: 20241017
  Serious: Yes (Other)
  Sender: JAZZ
  Company Number: GR-JAZZ PHARMACEUTICALS-2023-GR-020429

PATIENT
  Age: 49 Year
  Sex: Male
  Weight: 147 kg

DRUGS (4)
  1. VYXEOS [Suspect]
     Active Substance: CYTARABINE\DAUNORUBICIN
     Indication: Acute myeloid leukaemia
     Dosage: UNK
     Dates: start: 20230414
  2. VYXEOS [Suspect]
     Active Substance: CYTARABINE\DAUNORUBICIN
     Dosage: 1ST CYCLE
     Dates: start: 20230526
  3. MIDOSTAURIN [Suspect]
     Active Substance: MIDOSTAURIN
     Indication: Acute myeloid leukaemia
     Dosage: UNK
     Dates: start: 20230414
  4. MIDOSTAURIN [Suspect]
     Active Substance: MIDOSTAURIN
     Dosage: UNK

REACTIONS (3)
  - Neutropenic colitis [Unknown]
  - Bacteraemia [Unknown]
  - Lower respiratory tract infection [Unknown]
